FAERS Safety Report 6382109-9 (Version None)
Quarter: 2009Q3

REPORT INFORMATION
  Report Type: 
  Country: None (occurrence: None)
  Receive Date: 20090925
  Receipt Date: 20090914
  Transmission Date: 20100115
  Serious: Yes (Hospitalization)
  Sender: FDA-Public Use
  Company Number: 8052073

PATIENT
  Sex: Female

DRUGS (9)
  1. KEPPRA XR [Suspect]
     Indication: CONVULSION
     Dosage: 500 MG /D PO
     Route: 048
     Dates: start: 20090101, end: 20090801
  2. KEPPRA XR [Suspect]
     Indication: CONVULSION
     Dosage: 500 MG 2/D PO
     Route: 048
     Dates: start: 20090801, end: 20090901
  3. KEPPRA XR [Suspect]
     Indication: CONVULSION
     Dosage: 500 MG PO
     Route: 048
     Dates: start: 20090901
  4. KEPPRA XR [Suspect]
     Indication: CONVULSION
     Dosage: 1000 MG PO
     Route: 048
     Dates: start: 20090901
  5. BENAZEPRIL HYDROCHLORIDE [Concomitant]
  6. ZOLOFT [Concomitant]
  7. ZOCOR [Concomitant]
  8. TOPAMAX [Concomitant]
  9. TRICOR [Concomitant]

REACTIONS (2)
  - COMA [None]
  - CONVULSION [None]
